FAERS Safety Report 9786131 (Version 1)
Quarter: 2013Q4

REPORT INFORMATION
  Report Type: Spontaneous
  Country: FR (occurrence: FR)
  Receive Date: 20131227
  Receipt Date: 20131227
  Transmission Date: 20140711
  Serious: Yes (Hospitalization)
  Sender: FDA-Public Use
  Company Number: FR-US-EMD SERONO, INC.-7257520

PATIENT
  Sex: Female

DRUGS (4)
  1. OVITRELLE [Suspect]
     Indication: IN VITRO FERTILISATION
     Route: 058
     Dates: start: 20130127, end: 20130127
  2. MENOPUR /01277604/ [Suspect]
     Indication: IN VITRO FERTILISATION
     Dosage: 150 IU DURING 10 DAYS AND THEN 75 IU
     Route: 058
     Dates: start: 201301
  3. MENOPUR /01277604/ [Suspect]
     Route: 058
     Dates: end: 20130125
  4. DECAPEPTYL /00486501/ [Suspect]
     Indication: IN VITRO FERTILISATION
     Dosage: (EXTENDED-RELEASE) 3 MG, POWDER AND SOLVENT FOR SUSPENSION FOR INJECTION (IM) EXTENDED-RELEASE FORM
     Route: 030
     Dates: start: 201301

REACTIONS (3)
  - Pleural effusion [Recovered/Resolved]
  - Ascites [Recovered/Resolved]
  - Ovarian hyperstimulation syndrome [Recovered/Resolved]
